FAERS Safety Report 5702493-6 (Version None)
Quarter: 2008Q2

REPORT INFORMATION
  Report Type: 
  Country: None (occurrence: None)
  Receive Date: 20080411
  Receipt Date: 20080402
  Transmission Date: 20081010
  Serious: Yes (Hospitalization)
  Sender: FDA-Public Use
  Company Number: VE-ABBOTT-08P-178-0445326-00

PATIENT
  Age: 40 Year
  Sex: Female

DRUGS (1)
  1. KALETRA [Suspect]
     Indication: HIV INFECTION

REACTIONS (5)
  - CYTOMEGALOVIRUS INFECTION [None]
  - GASTRIC DILATATION [None]
  - HYPOXIA [None]
  - IMPAIRED GASTRIC EMPTYING [None]
  - PANCREATITIS [None]
